FAERS Safety Report 5847562-5 (Version None)
Quarter: 2008Q3

REPORT INFORMATION
  Report Type: 
  Country: None (occurrence: None)
  Receive Date: 20080818
  Receipt Date: 20070703
  Transmission Date: 20090109
  Serious: No
  Sender: FDA-Public Use
  Company Number: JP-BAYER-200710352BYL

PATIENT
  Age: 55 Year
  Sex: Male

DRUGS (4)
  1. BAY43-9006 [Suspect]
     Indication: NON-SMALL CELL LUNG CANCER
     Dosage: TOTAL DAILY DOSE: 800 MG  UNIT DOSE: 400 MG
     Route: 048
     Dates: start: 20070425, end: 20070509
  2. BAY43-9006 [Suspect]
     Route: 048
     Dates: start: 20070219
  3. CARBOPLATIN [Suspect]
     Indication: NON-SMALL CELL LUNG CANCER
     Route: 042
  4. PACLITAXEL [Suspect]
     Indication: NON-SMALL CELL LUNG CANCER
     Route: 042

REACTIONS (1)
  - NON-SMALL CELL LUNG CANCER [None]
